FAERS Safety Report 21362158 (Version 1)
Quarter: 2022Q3

REPORT INFORMATION
  Report Type: Spontaneous
  Country: TR (occurrence: TR)
  Receive Date: 20220922
  Receipt Date: 20220922
  Transmission Date: 20221027
  Serious: Yes (Hospitalization, Other)
  Sender: FDA-Public Use
  Company Number: TR-NOVARTISPH-NVSC2022TR211859

PATIENT
  Age: 57 Year
  Sex: Female

DRUGS (2)
  1. HYDROCHLOROTHIAZIDE\VALSARTAN [Suspect]
     Active Substance: HYDROCHLOROTHIAZIDE\VALSARTAN
     Indication: Hypertension
     Dosage: UNK, 160 MG/12.5 MG STARTED FOR 15 YEARS
     Route: 065
  2. HYDROCHLOROTHIAZIDE\VALSARTAN [Suspect]
     Active Substance: HYDROCHLOROTHIAZIDE\VALSARTAN
     Dosage: 1 DOSAGE FORM, QD, 320 MG/25 MG
     Route: 065
     Dates: start: 202111

REACTIONS (4)
  - Myocardial infarction [Unknown]
  - Blood pressure systolic increased [Unknown]
  - Drug intolerance [Unknown]
  - Underdose [Unknown]
